FAERS Safety Report 7780359-8 (Version None)
Quarter: 2011Q3

REPORT INFORMATION
  Report Type: 
  Country: None (occurrence: None)
  Receive Date: 20110927
  Receipt Date: 20110916
  Transmission Date: 20111222
  Serious: Yes (Disabling)
  Sender: FDA-Public Use
  Company Number: DE-SANOFI-AVENTIS-2011SA018379

PATIENT
  Sex: Male

DRUGS (3)
  1. FEXOFENADINE HCL [Suspect]
     Route: 065
  2. IBUPROFEN [Suspect]
     Indication: GOUT
     Route: 065
     Dates: start: 20010101
  3. DICLOFENAC [Suspect]
     Route: 065

REACTIONS (3)
  - SPLEEN DISORDER [None]
  - ARTHRALGIA [None]
  - LIVER DISORDER [None]
